FAERS Safety Report 12608494 (Version 2)
Quarter: 2017Q1

REPORT INFORMATION
  Report Type: Spontaneous
  Country: US (occurrence: US)
  Receive Date: 20160729
  Receipt Date: 20170112
  Transmission Date: 20170428
  Serious: No
  Sender: FDA-Public Use
  Company Number: US-DEPOMED, INC.-US-2016DEP008008

PATIENT

DRUGS (2)
  1. FENTANYL CITRATE. [Suspect]
     Active Substance: FENTANYL CITRATE
     Indication: PRODUCT USED FOR UNKNOWN INDICATION
     Dosage: 100 MCG/1 BOTTLE; 1 SPRAY/1 NOSTRIL, AS NEEDED
     Route: 045
  2. FENTANYL CITRATE. [Suspect]
     Active Substance: FENTANYL CITRATE
     Dosage: 100 MCG/1 BOTTLE; 1 SPRAY/EACH NOSTRIL; AS NEEDED
     Route: 045

REACTIONS (1)
  - Drug effect decreased [Unknown]
